FAERS Safety Report 5729097-3 (Version None)
Quarter: 2008Q2

REPORT INFORMATION
  Report Type: 
  Country: None (occurrence: None)
  Receive Date: 20080505
  Receipt Date: 20080505
  Transmission Date: 20081010
  Serious: Yes (Other)
  Sender: FDA-Public Use
  Company Number: None

PATIENT
  Sex: Female
  Weight: 92.0802 kg

DRUGS (1)
  1. QUASENSE [Suspect]
     Indication: CONTRACEPTION
     Dosage: 1 PO Q DAY
     Route: 048
     Dates: start: 20040301, end: 20040601

REACTIONS (1)
  - MUSCLE SPASMS [None]
